FAERS Safety Report 17294537 (Version 3)
Quarter: 2021Q1

REPORT INFORMATION
  Report Type: Other
  Country: US (occurrence: US)
  Receive Date: 20200121
  Receipt Date: 20210326
  Transmission Date: 20210419
  Serious: Yes (Death)
  Sender: FDA-Public Use
  Company Number: US-ROCHE-2524378

PATIENT
  Age: 67 Year
  Sex: Female

DRUGS (8)
  1. NEURONTIN [Concomitant]
     Active Substance: GABAPENTIN
  2. TECENTRIQ [Suspect]
     Active Substance: ATEZOLIZUMAB
     Indication: ANAEMIA
  3. ZOFRAN [Concomitant]
     Active Substance: ONDANSETRON HYDROCHLORIDE
  4. TECENTRIQ [Suspect]
     Active Substance: ATEZOLIZUMAB
     Indication: BREAST CANCER FEMALE
     Route: 065
  5. LEXAPRO [Concomitant]
     Active Substance: ESCITALOPRAM OXALATE
  6. ATIVAN [Concomitant]
     Active Substance: LORAZEPAM
  7. ZOVIRAX [Concomitant]
     Active Substance: ACYCLOVIR
  8. NORCO [Concomitant]
     Active Substance: ACETAMINOPHEN\HYDROCODONE BITARTRATE

REACTIONS (2)
  - Off label use [Fatal]
  - Death [Fatal]

NARRATIVE: CASE EVENT DATE: 20190828
